FAERS Safety Report 11999791 (Version 1)
Quarter: 2016Q1

REPORT INFORMATION
  Report Type: Spontaneous
  Country: US (occurrence: US)
  Receive Date: 20160204
  Receipt Date: 20160204
  Transmission Date: 20160526
  Serious: Yes (Other)
  Sender: FDA-Public Use
  Company Number: US-BAYER-2016-020636

PATIENT

DRUGS (1)
  1. ALEVE [Suspect]
     Active Substance: NAPROXEN SODIUM
     Dosage: UNK UNK, ONCE
     Dates: start: 2015, end: 2015

REACTIONS (3)
  - Obstructive airways disorder [None]
  - Chest pain [None]
  - Drug hypersensitivity [None]

NARRATIVE: CASE EVENT DATE: 2015
